FAERS Safety Report 15940694 (Version 3)
Quarter: 2021Q2

REPORT INFORMATION
  Report Type: Spontaneous
  Country: US (occurrence: US)
  Receive Date: 20190208
  Receipt Date: 20210513
  Transmission Date: 20210716
  Serious: Yes (Other)
  Sender: FDA-Public Use
  Company Number: US-ASTRAZENECA-2019SE10877

PATIENT
  Age: 49 Year
  Sex: Male
  Weight: 123.4 kg

DRUGS (22)
  1. PRILOSEC [Suspect]
     Active Substance: OMEPRAZOLE MAGNESIUM
     Indication: GASTROOESOPHAGEAL REFLUX DISEASE
     Dosage: FOR MULTIPLE AND VARIOUS YEARS
     Route: 048
  2. PRILOSEC [Suspect]
     Active Substance: OMEPRAZOLE MAGNESIUM
     Indication: GASTROOESOPHAGEAL REFLUX DISEASE
     Dosage: GENERIC
     Route: 065
  3. PRILOSEC OTC [Suspect]
     Active Substance: OMEPRAZOLE MAGNESIUM
     Dosage: FOR MULTIPLE AND VARIOUS YEARS
     Route: 048
  4. PREVACID 24 HR [Suspect]
     Active Substance: LANSOPRAZOLE
     Dosage: FOR MULTIPLE AND VARIOUS YEARS
     Route: 065
  5. BENADRYL [Concomitant]
     Active Substance: DIPHENHYDRAMINE HYDROCHLORIDE
     Indication: HYPERSENSITIVITY
  6. CYCLOBENZAPRINE. [Concomitant]
     Active Substance: CYCLOBENZAPRINE
     Route: 048
  7. CYMBALTA [Concomitant]
     Active Substance: DULOXETINE HYDROCHLORIDE
     Route: 048
     Dates: start: 20130728
  8. VITAMIN D [Concomitant]
     Active Substance: VITAMIN D NOS
     Dates: start: 2000
  9. PREVACID [Suspect]
     Active Substance: LANSOPRAZOLE
     Indication: GASTROOESOPHAGEAL REFLUX DISEASE
     Dosage: FOR MULTIPLE AND VARIOUS YEARS
     Route: 065
  10. PROTONIX [Suspect]
     Active Substance: PANTOPRAZOLE SODIUM
     Indication: GASTROOESOPHAGEAL REFLUX DISEASE
     Dosage: FOR MULTIPLE AND VARIOUS YEARS
     Route: 065
  11. SUCRALFATE. [Concomitant]
     Active Substance: SUCRALFATE
     Route: 048
  12. TUMS [Concomitant]
     Active Substance: CALCIUM CARBONATE
     Dates: start: 2017
  13. NEXIUM [Suspect]
     Active Substance: ESOMEPRAZOLE MAGNESIUM
     Route: 048
  14. DEXILANT [Suspect]
     Active Substance: DEXLANSOPRAZOLE
     Dosage: FOR MULTIPLE AND VARIOUS YEARS
     Route: 065
  15. RANITIDINE. [Concomitant]
     Active Substance: RANITIDINE
     Route: 048
     Dates: start: 20170313
  16. ROLAIDS [Concomitant]
     Active Substance: CALCIUM CARBONATE\MAGNESIUM HYDROXIDE
     Dates: start: 2017
  17. NEXIUM 24HR [Suspect]
     Active Substance: ESOMEPRAZOLE MAGNESIUM
     Dosage: FOR MULTIPLE AND VARIOUS YEARS
     Route: 048
  18. NITROSTAT [Concomitant]
     Active Substance: NITROGLYCERIN
     Route: 048
     Dates: start: 20130728
  19. METOPROLOL SUCCINATE. [Concomitant]
     Active Substance: METOPROLOL SUCCINATE
     Route: 048
  20. TIZANIDINE. [Concomitant]
     Active Substance: TIZANIDINE
     Route: 048
     Dates: start: 20130621
  21. NEXIUM [Suspect]
     Active Substance: ESOMEPRAZOLE MAGNESIUM
     Dosage: FOR MULTIPLE AND VARIOUS YEARS
     Route: 048
  22. DOXYCYCLINE. [Concomitant]
     Active Substance: DOXYCYCLINE
     Route: 048
     Dates: start: 20130728

REACTIONS (6)
  - Depression [Not Recovered/Not Resolved]
  - Renal injury [Unknown]
  - Rebound acid hypersecretion [Unknown]
  - Anxiety [Not Recovered/Not Resolved]
  - Chronic kidney disease [Recovered/Resolved]
  - Renal failure [Unknown]

NARRATIVE: CASE EVENT DATE: 2014
